FAERS Safety Report 6442128-0 (Version None)
Quarter: 2009Q4

REPORT INFORMATION
  Report Type: 
  Country: None (occurrence: None)
  Receive Date: 20091116
  Receipt Date: 20091104
  Transmission Date: 20100525
  Serious: Yes (Other)
  Sender: FDA-Public Use
  Company Number: PHEH2009US04618

PATIENT
  Sex: Female

DRUGS (4)
  1. FEMARA [Suspect]
     Indication: BREAST CANCER
     Dosage: 2.5 MG, QD
     Route: 048
     Dates: start: 20080601
  2. COUMADIN [Concomitant]
  3. DILTIAZEM [Concomitant]
  4. DIGOXIN [Concomitant]

REACTIONS (2)
  - FALL [None]
  - PAIN IN EXTREMITY [None]
